FAERS Safety Report 6260247-9 (Version None)
Quarter: 2009Q3

REPORT INFORMATION
  Report Type: 
  Country: None (occurrence: None)
  Receive Date: 20090708
  Receipt Date: 20090701
  Transmission Date: 20100115
  Serious: Yes (Other)
  Sender: FDA-Public Use
  Company Number: JP-WATSON-2009-03072

PATIENT
  Age: 70 Year
  Sex: Male

DRUGS (4)
  1. RAPAFLO [Suspect]
     Indication: BLADDER OBSTRUCTION
     Dosage: 4 MG, BID
     Route: 048
     Dates: start: 20080418, end: 20080925
  2. ASPIRIN [Concomitant]
     Indication: DRUG USE FOR UNKNOWN INDICATION
     Dosage: 100 MG, UNK
     Route: 048
     Dates: start: 20060123
  3. GASTER D [Concomitant]
     Indication: PROPHYLAXIS AGAINST GASTROINTESTINAL ULCER
     Dosage: 20 MG, DAILY
     Route: 048
     Dates: start: 20060130
  4. NORVASC [Concomitant]
     Indication: DRUG USE FOR UNKNOWN INDICATION
     Dosage: 5 MG, DAILY
     Route: 048
     Dates: start: 20060227

REACTIONS (3)
  - ECZEMA [None]
  - PRURITUS [None]
  - RASH ERYTHEMATOUS [None]
